FAERS Safety Report 15825094 (Version 1)
Quarter: 2019Q1

REPORT INFORMATION
  Report Type: Spontaneous
  Country: US (occurrence: US)
  Receive Date: 20190114
  Receipt Date: 20190114
  Transmission Date: 20190417
  Serious: Yes (Other)
  Sender: FDA-Public Use
  Company Number: None

PATIENT
  Age: 63 Year
  Sex: Female
  Weight: 119.7 kg

DRUGS (11)
  1. CLONAZAPAM [Concomitant]
     Active Substance: CLONAZEPAM
  2. GABAPENTIN. [Concomitant]
     Active Substance: GABAPENTIN
  3. SERTRALINE [Concomitant]
     Active Substance: SERTRALINE HYDROCHLORIDE
  4. LOSARTIN [Concomitant]
     Active Substance: LOSARTAN
  5. FOLIC ACID. [Concomitant]
     Active Substance: FOLIC ACID
  6. BUSPRIRONE [Concomitant]
  7. COLCHICINE 0.6 MG SUBSTITUTED FOR COLCRYS [Suspect]
     Active Substance: COLCHICINE
     Indication: GOUT
     Dosage: ?          QUANTITY:20 TABLET(S);OTHER FREQUENCY:HOURLY;?
     Dates: start: 20190102, end: 20190104
  8. OMEPRAZOLE. [Concomitant]
     Active Substance: OMEPRAZOLE
  9. VITAMIN D [Concomitant]
     Active Substance: CHOLECALCIFEROL
  10. LEVOTHYROXINE. [Concomitant]
     Active Substance: LEVOTHYROXINE
  11. MONTELUKAST [Concomitant]
     Active Substance: MONTELUKAST SODIUM

REACTIONS (9)
  - Skin burning sensation [None]
  - Eructation [None]
  - Diarrhoea [None]
  - Weight decreased [None]
  - Fatigue [None]
  - Pain in extremity [None]
  - Asthenia [None]
  - Nausea [None]
  - Bedridden [None]

NARRATIVE: CASE EVENT DATE: 20190102
